FAERS Safety Report 17078914 (Version 4)
Quarter: 2020Q3

REPORT INFORMATION
  Report Type: Report from Study
  Country: None (occurrence: US)
  Receive Date: 20191127
  Receipt Date: 20200904
  Transmission Date: 20201102
  Serious: Yes (Hospitalization, Other)
  Sender: FDA-Public Use
  Company Number: US-ABBVIE-19K-163-3168196-00

PATIENT
  Age: 59 Year
  Sex: Female
  Weight: 81.72 kg

DRUGS (2)
  1. HUMIRA [Suspect]
     Active Substance: ADALIMUMAB
     Indication: CROHN^S DISEASE
  2. HUMIRA [Suspect]
     Active Substance: ADALIMUMAB
     Indication: RHEUMATOID ARTHRITIS
     Route: 058

REACTIONS (9)
  - Pulmonary embolism [Unknown]
  - Spinal operation [Not Recovered/Not Resolved]
  - Haematoma [Not Recovered/Not Resolved]
  - Pain [Unknown]
  - Myocardial infarction [Unknown]
  - Diarrhoea [Unknown]
  - Post procedural complication [Unknown]
  - Hospitalisation [Unknown]
  - Colitis [Unknown]

NARRATIVE: CASE EVENT DATE: 201503
